FAERS Safety Report 12779145 (Version 1)
Quarter: 2016Q3

REPORT INFORMATION
  Report Type: Spontaneous
  Country: US (occurrence: US)
  Receive Date: 20160926
  Receipt Date: 20160926
  Transmission Date: 20161109
  Serious: No
  Sender: FDA-Public Use
  Company Number: US-JAZZ-2016-US-010558

PATIENT
  Age: 46 Year
  Sex: Female

DRUGS (31)
  1. METHOCARBAMOL. [Concomitant]
     Active Substance: METHOCARBAMOL
  2. CLONIDINE HCL [Concomitant]
     Active Substance: CLONIDINE HYDROCHLORIDE
  3. POTASSIUM CL [Concomitant]
     Active Substance: POTASSIUM CHLORIDE
  4. XYREM [Suspect]
     Active Substance: SODIUM OXYBATE
     Dosage: 5.25 G, TID
     Route: 048
     Dates: start: 201503, end: 2015
  5. BUMETANIDE. [Concomitant]
     Active Substance: BUMETANIDE
  6. ALPRAZOLAM. [Concomitant]
     Active Substance: ALPRAZOLAM
  7. MYRBETRIQ [Concomitant]
     Active Substance: MIRABEGRON
  8. PROMETRIUM [Concomitant]
     Active Substance: PROGESTERONE
  9. TOPAMAX [Concomitant]
     Active Substance: TOPIRAMATE
  10. XYREM [Suspect]
     Active Substance: SODIUM OXYBATE
     Dosage: 5.25 G, TID
     Route: 048
     Dates: start: 201405, end: 2014
  11. SOMA [Concomitant]
     Active Substance: CARISOPRODOL
  12. XYREM [Suspect]
     Active Substance: SODIUM OXYBATE
     Indication: CATAPLEXY
     Dosage: DOSE ADJSUTMENTS
     Route: 048
     Dates: start: 201304, end: 201405
  13. EDLUAR [Concomitant]
     Active Substance: ZOLPIDEM TARTRATE
  14. CLONAZEPAM. [Concomitant]
     Active Substance: CLONAZEPAM
  15. CYMBALTA [Concomitant]
     Active Substance: DULOXETINE HYDROCHLORIDE
  16. SYNTHROID [Concomitant]
     Active Substance: LEVOTHYROXINE SODIUM
  17. PROMETHAZINE [Concomitant]
     Active Substance: PROMETHAZINE\PROMETHAZINE HYDROCHLORIDE
  18. XYREM [Suspect]
     Active Substance: SODIUM OXYBATE
     Indication: NARCOLEPSY
     Dosage: 3 G, BID
     Route: 048
     Dates: start: 201304, end: 201304
  19. XYREM [Suspect]
     Active Substance: SODIUM OXYBATE
     Dosage: 2.25 G, BID
     Route: 048
     Dates: start: 201605, end: 201606
  20. XYREM [Suspect]
     Active Substance: SODIUM OXYBATE
     Dosage: 3 G, BID
     Route: 048
     Dates: start: 201606, end: 201606
  21. FROVA [Concomitant]
     Active Substance: FROVATRIPTAN SUCCINATE
  22. XANAX [Concomitant]
     Active Substance: ALPRAZOLAM
  23. TRAZODONE HYDROCHLORIDE. [Concomitant]
     Active Substance: TRAZODONE HYDROCHLORIDE
  24. XYREM [Suspect]
     Active Substance: SODIUM OXYBATE
     Dosage: 4.5 G, BID
     Route: 048
     Dates: start: 201606
  25. HYDROXYZINE HCL [Concomitant]
     Active Substance: HYDROXYZINE HYDROCHLORIDE
  26. ZOLPIDEM TARTRATE. [Concomitant]
     Active Substance: ZOLPIDEM TARTRATE
  27. AMITIZA [Concomitant]
     Active Substance: LUBIPROSTONE
  28. MARINOL [Concomitant]
     Active Substance: DRONABINOL
  29. GABAPENTIN. [Concomitant]
     Active Substance: GABAPENTIN
  30. REMERON [Concomitant]
     Active Substance: MIRTAZAPINE
  31. FLURAZEPAM HCL [Concomitant]
     Active Substance: FLURAZEPAM HYDROCHLORIDE

REACTIONS (5)
  - Road traffic accident [Recovered/Resolved]
  - Tremor [Unknown]
  - Swelling [Not Recovered/Not Resolved]
  - Insomnia [Not Recovered/Not Resolved]
  - Myalgia [Not Recovered/Not Resolved]

NARRATIVE: CASE EVENT DATE: 201606
